FAERS Safety Report 4475947-0 (Version None)
Quarter: 2004Q4

REPORT INFORMATION
  Report Type: 
  Country: None (occurrence: None)
  Receive Date: 20041012
  Receipt Date: 20040923
  Transmission Date: 20050328
  Serious: Yes (Disabling)
  Sender: FDA-Public Use
  Company Number: DSA_25048_2004

PATIENT
  Age: 43 Year
  Sex: Female
  Weight: 98.8842 kg

DRUGS (7)
  1. LORAZEPAM [Suspect]
     Indication: ANXIETY DISORDER
     Dosage: 2 MG TID PO
     Route: 048
     Dates: start: 19960101, end: 19980901
  2. ATIVAN [Suspect]
     Indication: ANXIETY
     Dosage: 2 MG TID PO
     Route: 048
     Dates: start: 19940101, end: 19960101
  3. LORAZEPAM [Concomitant]
     Indication: ANXIETY DISORDER
     Dosage: 1 MG TID PO
     Route: 048
     Dates: start: 19981201, end: 19990201
  4. LORAZEPAM [Suspect]
     Indication: ANXIETY DISORDER
     Dosage: 2 MG TID PO
     Route: 048
     Dates: start: 19990201, end: 20031101
  5. LORAZEPAM [Suspect]
     Indication: ANXIETY DISORDER
     Dosage: 2 MG BID PO
     Route: 048
     Dates: start: 20031101
  6. TRAZODONE HCL [Concomitant]
  7. EFFEXOR [Concomitant]

REACTIONS (10)
  - AGORAPHOBIA [None]
  - ALCOHOLISM [None]
  - DRUG WITHDRAWAL SYNDROME [None]
  - INSOMNIA [None]
  - MANIA [None]
  - MUSCLE SPASMS [None]
  - NEUROLOGICAL EXAMINATION ABNORMAL [None]
  - PANIC DISORDER [None]
  - POST-TRAUMATIC STRESS DISORDER [None]
  - TREMOR [None]
